FAERS Safety Report 7014763-2 (Version None)
Quarter: 2010Q3

REPORT INFORMATION
  Report Type: 
  Country: None (occurrence: None)
  Receive Date: 20100927
  Receipt Date: 20100525
  Transmission Date: 20110219
  Serious: Yes (Hospitalization, Other)
  Sender: FDA-Public Use
  Company Number: PHFR2010GB00654

PATIENT
  Sex: Male
  Weight: 85 kg

DRUGS (8)
  1. CLOZARIL [Suspect]
     Indication: SCHIZOPHRENIA
     Dosage: UNK
     Route: 048
     Dates: start: 20080308, end: 20100510
  2. CLOZARIL [Suspect]
     Dosage: 12.5 MG AM + 25 MG PM
     Route: 048
     Dates: start: 20100520, end: 20100523
  3. CLOZARIL [Suspect]
     Dosage: 25 MG, QD
     Route: 048
     Dates: start: 20100524
  4. CLOZARIL [Suspect]
     Dosage: 200 MG MANE + 300 MG NOCTE
     Route: 048
  5. METHADONE [Concomitant]
     Dosage: 120 ML, UNK
     Route: 048
  6. DIAZEPAM [Concomitant]
     Indication: ANXIETY
     Dosage: 32 MG, UNK
  7. METFORMIN [Concomitant]
     Indication: TYPE 2 DIABETES MELLITUS
     Dosage: 850 MG, BID
     Route: 048
  8. SIMVASTATIN [Concomitant]
     Indication: HYPERCHOLESTEROLAEMIA
     Dosage: 20 MG, UNK
     Route: 048

REACTIONS (3)
  - CIRCULATORY COLLAPSE [None]
  - PLEURISY [None]
  - TREATMENT NONCOMPLIANCE [None]
